FAERS Safety Report 7368879-1 (Version None)
Quarter: 2011Q1

REPORT INFORMATION
  Report Type: 
  Country: None (occurrence: None)
  Receive Date: 20110323
  Receipt Date: 20110321
  Transmission Date: 20110831
  Serious: Yes (Death)
  Sender: FDA-Public Use
  Company Number: VE-PFIZER INC-2011061574

PATIENT
  Age: 87 Year
  Sex: Female

DRUGS (1)
  1. CADUET [Suspect]
     Indication: CARDIAC DISORDER
     Dosage: 5/40 MG, 1X/DAY
     Route: 048
     Dates: start: 20080101, end: 20110123

REACTIONS (1)
  - CARDIAC ARREST [None]
